FAERS Safety Report 4278078-8 (Version None)
Quarter: 2004Q1

REPORT INFORMATION
  Report Type: 
  Country: None (occurrence: None)
  Receive Date: 20040121
  Receipt Date: 20040106
  Transmission Date: 20041129
  Serious: Yes (Other)
  Sender: FDA-Public Use
  Company Number: USA031255254

PATIENT
  Age: 79 Year
  Sex: Female

DRUGS (5)
  1. FORTEO [Suspect]
     Indication: OSTEOPOROSIS
     Dosage: 20 UG/DAY
  2. VIOXX [Concomitant]
  3. TYLOX [Concomitant]
  4. VICODIN [Concomitant]
  5. CELEXA [Concomitant]

REACTIONS (5)
  - ARTHRALGIA [None]
  - FALL [None]
  - JOINT STIFFNESS [None]
  - MUSCULOSKELETAL STIFFNESS [None]
  - WRIST FRACTURE [None]
